FAERS Safety Report 9388208 (Version 1)
Quarter: 2013Q3

REPORT INFORMATION
  Report Type: Spontaneous
  Country: US (occurrence: US)
  Receive Date: 20130708
  Receipt Date: 20130708
  Transmission Date: 20140515
  Serious: Yes (Hospitalization, Other)
  Sender: FDA-Public Use
  Company Number: US-BRISTOL-MYERS SQUIBB COMPANY-17462615

PATIENT
  Age: 68 Year
  Sex: Female
  Weight: 90.7 kg

DRUGS (6)
  1. BYDUREON [Suspect]
     Indication: TYPE 2 DIABETES MELLITUS
     Dosage: LONG ACTING RELEASED 2MG
     Route: 058
     Dates: start: 2012
  2. ACTOS [Concomitant]
     Indication: TYPE 2 DIABETES MELLITUS
     Route: 048
  3. PLAVIX [Concomitant]
  4. ASPIRIN [Concomitant]
  5. LANTUS [Concomitant]
  6. INSULIN [Concomitant]
     Route: 058

REACTIONS (7)
  - Ankle fracture [Recovering/Resolving]
  - Post procedural complication [Unknown]
  - Hypoaesthesia [Recovering/Resolving]
  - Fall [Recovered/Resolved]
  - Injection site haemorrhage [Recovering/Resolving]
  - Blood glucose increased [Unknown]
  - Glycosylated haemoglobin increased [Unknown]
